FAERS Safety Report 6969359-5 (Version None)
Quarter: 2010Q3

REPORT INFORMATION
  Report Type: 
  Country: None (occurrence: None)
  Receive Date: 20100902
  Receipt Date: 20100819
  Transmission Date: 20110219
  Serious: Yes (Other)
  Sender: FDA-Public Use
  Company Number: DSJ-2010-08470

PATIENT
  Age: 75 Year
  Sex: Male

DRUGS (5)
  1. AMLODIPINE BESYLATE AND OLMESARTAN MEDOXOMIL [Suspect]
     Indication: HYPERTENSION
     Dosage: 40/5 MG (1 IN 1 D), PER ORAL
     Route: 048
     Dates: start: 20080301
  2. DICLOFENAC SODIUM [Suspect]
     Indication: PAIN IN EXTREMITY
     Dosage: , PER ORAL
     Route: 048
     Dates: start: 20100801
  3. DIURETIC MEDICINE (NAME UNKNOWN) (DIURETICS) [Suspect]
     Indication: HYPERTENSION
     Dosage: , PER ORAL
     Route: 048
  4. BETAHISTINE [Suspect]
  5. DIURETIC MEDICINE [Concomitant]

REACTIONS (4)
  - DRUG INEFFECTIVE [None]
  - DRY MOUTH [None]
  - PAIN IN EXTREMITY [None]
  - TENDON RUPTURE [None]
